FAERS Safety Report 6426816-8 (Version None)
Quarter: 2009Q4

REPORT INFORMATION
  Report Type: 
  Country: None (occurrence: None)
  Receive Date: 20091104
  Receipt Date: 20091102
  Transmission Date: 20100525
  Serious: Yes (Death)
  Sender: FDA-Public Use
  Company Number: HK-JNJFOC-20091008037

PATIENT
  Sex: Male
  Weight: 50 kg

DRUGS (1)
  1. DORIPENEM [Suspect]
     Indication: DRUG USE FOR UNKNOWN INDICATION
     Route: 041
     Dates: start: 20091009, end: 20091017

REACTIONS (2)
  - MULTI-ORGAN FAILURE [None]
  - WOUND INFECTION FUNGAL [None]
